FAERS Safety Report 9490709 (Version 1)
Quarter: 2013Q3

REPORT INFORMATION
  Report Type: Spontaneous
  Country: US (occurrence: None)
  Receive Date: 20130828
  Receipt Date: 20130828
  Transmission Date: 20140515
  Serious: Yes (Hospitalization)
  Sender: FDA-Public Use
  Company Number: None

PATIENT
  Age: 60 Year
  Sex: Female
  Weight: 76 kg

DRUGS (16)
  1. CISPLATIN [Suspect]
  2. ALPRAZOLAM [Concomitant]
  3. AMBIEN [Concomitant]
  4. ASPRIN [Concomitant]
  5. DIOVAN [Concomitant]
  6. ESCITALPRAM [Concomitant]
  7. HYDROCODONE-ACETAMINOPHEN [Concomitant]
  8. LEVOTHYROXINE [Concomitant]
  9. LISINOPRIL [Concomitant]
  10. PROMETHAZINE [Concomitant]
  11. TUMS [Concomitant]
  12. ACETAMINOPHEN [Concomitant]
  13. AMLODIPINE-ATORVASTIN [Concomitant]
  14. MAGNESIUM OXIDE [Concomitant]
  15. MULTIVITAMIN [Concomitant]
  16. NAPROXENE [Concomitant]

REACTIONS (4)
  - Nausea [None]
  - Vomiting [None]
  - Diarrhoea [None]
  - Dehydration [None]
